FAERS Safety Report 15852462 (Version 2)
Quarter: 2019Q1

REPORT INFORMATION
  Report Type: Spontaneous
  Country: US (occurrence: US)
  Receive Date: 20190122
  Receipt Date: 20190125
  Transmission Date: 20190417
  Serious: Yes (Other)
  Sender: FDA-Public Use
  Company Number: US-HTU-2017US016985

PATIENT
  Sex: Female

DRUGS (1)
  1. VALCHLOR [Suspect]
     Active Substance: MECHLORETHAMINE
     Indication: MYCOSIS FUNGOIDES
     Dosage: THIN FILM TO AFFECTED SKIN, DAILY
     Route: 061
     Dates: start: 20150623

REACTIONS (6)
  - Malaise [Unknown]
  - Mycosis fungoides [Not Recovered/Not Resolved]
  - Condition aggravated [Not Recovered/Not Resolved]
  - Condition aggravated [Unknown]
  - Pruritus [Unknown]
  - Rash [Unknown]
